FAERS Safety Report 15404218 (Version 1)
Quarter: 2018Q3

REPORT INFORMATION
  Report Type: Spontaneous
  Country: ES (occurrence: ES)
  Receive Date: 20180919
  Receipt Date: 20180919
  Transmission Date: 20181010
  Serious: Yes (Hospitalization, Other)
  Sender: FDA-Public Use
  Company Number: ES-SA-2018SA254479

PATIENT
  Sex: Female

DRUGS (2)
  1. LANTUS [Suspect]
     Active Substance: INSULIN GLARGINE
     Indication: DIABETES MELLITUS
     Dosage: 12?0?20
     Route: 058
  2. NOVORAPID [Concomitant]
     Active Substance: INSULIN ASPART
     Indication: DIABETES MELLITUS
     Dosage: UNK UNK, UNK
     Route: 058

REACTIONS (5)
  - Bipolar disorder [Recovered/Resolved]
  - Mental disorder [Recovered/Resolved]
  - Urine analysis abnormal [Recovered/Resolved]
  - Gastrointestinal infection [Recovered/Resolved]
  - Off label use [Unknown]
